FAERS Safety Report 16112856 (Version 1)
Quarter: 2019Q1

REPORT INFORMATION
  Report Type: Spontaneous
  Country: BG (occurrence: BG)
  Receive Date: 20190325
  Receipt Date: 20190325
  Transmission Date: 20190418
  Serious: Yes (Hospitalization, Other)
  Sender: FDA-Public Use
  Company Number: BG-BAYER-2019-053963

PATIENT
  Age: 80 Year
  Sex: Male

DRUGS (1)
  1. ASPIRIN PROTECT 100 MG [Suspect]
     Active Substance: ASPIRIN
     Dosage: UNK

REACTIONS (5)
  - Pulmonary embolism [None]
  - Dyspnoea [Recovering/Resolving]
  - Oedema peripheral [None]
  - Fatigue [None]
  - Chest pain [Recovered/Resolved]

NARRATIVE: CASE EVENT DATE: 201901
